FAERS Safety Report 26216235 (Version 1)
Quarter: 2025Q4

REPORT INFORMATION
  Report Type: Spontaneous
  Country: US (occurrence: US)
  Receive Date: 20251231
  Receipt Date: 20251231
  Transmission Date: 20260117
  Serious: No
  Sender: ELI LILLY AND COMPANY
  Company Number: US-ELI_LILLY_AND_COMPANY-US202512011352

PATIENT
  Age: 78 Year
  Sex: Female

DRUGS (4)
  1. KISUNLA [Interacting]
     Active Substance: DONANEMAB-AZBT
     Indication: Dementia
     Dosage: UNK UNK, UNKNOWN
     Route: 065
  2. DUPIXENT [Interacting]
     Active Substance: DUPILUMAB
     Indication: Dermatitis atopic
     Dosage: 600 MG, LOADING DOSE
     Route: 058
     Dates: start: 202508
  3. DUPIXENT [Interacting]
     Active Substance: DUPILUMAB
     Dosage: 300 MG, MAINTENANCE DOSE
     Route: 058
  4. PROLIA [Concomitant]
     Active Substance: DENOSUMAB
     Indication: Product used for unknown indication

REACTIONS (4)
  - Illness [Unknown]
  - Cough [Unknown]
  - Sinus disorder [Unknown]
  - Drug interaction [Unknown]
